FAERS Safety Report 6823813-5 (Version None)
Quarter: 2010Q3

REPORT INFORMATION
  Report Type: 
  Country: None (occurrence: None)
  Receive Date: 20100708
  Receipt Date: 20060902
  Transmission Date: 20110219
  Serious: No
  Sender: FDA-Public Use
  Company Number: US-PFIZER INC-2006109267

PATIENT
  Age: 55 Year
  Sex: Female
  Weight: 61.23 kg

DRUGS (2)
  1. CHANTIX [Suspect]
     Indication: EX-TOBACCO USER
     Dates: start: 20060801
  2. ANTIHYPERTENSIVES [Concomitant]

REACTIONS (3)
  - DECREASED ACTIVITY [None]
  - HYPERSOMNIA [None]
  - NAUSEA [None]
